FAERS Safety Report 6259442-4 (Version None)
Quarter: 2009Q3

REPORT INFORMATION
  Report Type: 
  Country: None (occurrence: None)
  Receive Date: 20090708
  Receipt Date: 20090630
  Transmission Date: 20100115
  Serious: Yes (Hospitalization)
  Sender: FDA-Public Use
  Company Number: US-BIOGENIDEC-2009BI002570

PATIENT
  Sex: Male

DRUGS (1)
  1. TYSABRI [Suspect]
     Indication: MULTIPLE SCLEROSIS
     Route: 042
     Dates: start: 20060922

REACTIONS (6)
  - HIP ARTHROPLASTY [None]
  - INTERVERTEBRAL DISC OPERATION [None]
  - OSTEONECROSIS [None]
  - PAIN [None]
  - POOR VENOUS ACCESS [None]
  - SPINAL FUSION SURGERY [None]
